FAERS Safety Report 8596801 (Version 4)
Quarter: 2012Q4

REPORT INFORMATION
  Report Type: Report from Study
  Country: JP (occurrence: JP)
  Receive Date: 20120605
  Receipt Date: 20121121
  Transmission Date: 20130627
  Serious: Yes (Hospitalization, Other)
  Sender: FDA-Public Use
  Company Number: JP-ASTELLAS-2012US005185

PATIENT
  Age: 63 Year
  Sex: Male
  Weight: 55 kg

DRUGS (24)
  1. ERLOTINIB TABLET [Suspect]
     Indication: ADENOCARCINOMA PANCREAS
     Dosage: 100 mg, UID/QD
     Route: 048
     Dates: start: 20120202, end: 20120228
  2. ERLOTINIB TABLET [Suspect]
     Dosage: 100 mg, UID/QD
     Route: 048
     Dates: start: 20120308, end: 20120607
  3. GEMCITABINE [Suspect]
     Indication: ADENOCARCINOMA PANCREAS
     Dosage: 1000 mg/m2, Weekly
     Route: 041
     Dates: start: 20120202, end: 20120216
  4. GEMCITABINE [Suspect]
     Dosage: 1000 mg/m2, Weekly
     Route: 041
     Dates: start: 20120308, end: 20120524
  5. GEMCITABINE [Suspect]
     Dosage: 1000 mg/m2, Weekly
     Route: 041
     Dates: start: 20120621
  6. GEMCITABINE [Suspect]
     Dosage: 1000 mg/m2, Weekly
     Route: 041
     Dates: start: 20120418, end: 20120418
  7. OXYCONTIN [Concomitant]
     Indication: ADENOCARCINOMA PANCREAS
     Dosage: 20 mg, UID/QD
     Route: 048
     Dates: start: 20120202
  8. OXYCONTIN [Concomitant]
     Dosage: 30 mg, UID/QD
     Route: 048
     Dates: start: 20120203, end: 20120215
  9. OXYCONTIN [Concomitant]
     Dosage: 40 mg, UID/QD
     Route: 048
     Dates: start: 20120216, end: 20120404
  10. TAKEPRON [Concomitant]
     Indication: PROPHYLAXIS
     Dosage: 30 mg, UID/QD
     Route: 048
  11. CALONAL [Concomitant]
     Indication: ADENOCARCINOMA PANCREAS
     Dosage: 900 mg, UID/QD
     Route: 048
     Dates: end: 20120215
  12. CALONAL [Concomitant]
     Dosage: 1800 mg, UID/QD
     Route: 048
     Dates: start: 2012
  13. PANTOSIN [Concomitant]
     Indication: PROPHYLAXIS
     Dosage: 3 g, UID/QD
     Route: 048
     Dates: end: 20120308
  14. MAGMITT [Concomitant]
     Indication: PROPHYLAXIS
     Dosage: 2000 mg, UID/QD
     Route: 048
     Dates: end: 20120308
  15. OXINORM [Concomitant]
     Indication: ADENOCARCINOMA PANCREAS
     Dosage: 5 mg, UID/QD PRN
     Route: 048
     Dates: end: 20120215
  16. OXINORM [Concomitant]
     Dosage: 10 mg, UID/QD PRN
     Route: 048
     Dates: start: 20120216
  17. PURSENNID [Concomitant]
     Indication: PROPHYLAXIS
     Dosage: 24 mg, prn
     Route: 048
     Dates: start: 20120207, end: 20120207
  18. FENTOS [Concomitant]
     Indication: ADENOCARCINOMA PANCREAS
     Dosage: 4 mg, UID/QD
     Route: 062
     Dates: start: 20120405, end: 20120523
  19. FENTOS [Concomitant]
     Dosage: 6 mg, UID/QD
     Route: 062
     Dates: start: 20120524, end: 20120607
  20. FENTOS [Concomitant]
     Dosage: 8 mg, UID/QD
     Route: 062
     Dates: start: 20120608
  21. GRANISETRON                        /01178102/ [Concomitant]
     Indication: PROPHYLAXIS
     Dosage: 1 mg, UID/QD
     Route: 042
     Dates: start: 20120202
  22. DEXART [Concomitant]
     Indication: PROPHYLAXIS
     Dosage: 6.6 UNK, Unknown/D
     Route: 042
     Dates: start: 20120202
  23. LYRICA [Concomitant]
     Indication: ADENOCARCINOMA PANCREAS
     Dosage: 150 mg, UID/QD
     Route: 048
     Dates: start: 20120613, end: 20120801
  24. LYRICA [Concomitant]
     Dosage: 75 mg, UID/QD
     Route: 048
     Dates: start: 20120802

REACTIONS (20)
  - White blood cell count decreased [Recovered/Resolved]
  - Neutrophil count decreased [Recovered/Resolved]
  - Platelet count decreased [Recovered/Resolved]
  - Hypoalbuminaemia [Recovered/Resolved]
  - Hyperglycaemia [Recovered/Resolved]
  - Anaemia [Recovered/Resolved]
  - Haematuria [Recovered/Resolved]
  - Vomiting [Recovered/Resolved]
  - Decreased appetite [Recovered/Resolved]
  - Aspartate aminotransferase increased [Recovered/Resolved]
  - Blood alkaline phosphatase increased [Recovered/Resolved]
  - Rash [Recovered/Resolved]
  - Pyrexia [Unknown]
  - Decreased appetite [Recovered/Resolved]
  - Platelet count decreased [Recovered/Resolved]
  - Vomiting [Recovered/Resolved]
  - Vomiting [Recovered/Resolved]
  - Insomnia [Recovered/Resolved]
  - Constipation [Recovering/Resolving]
  - Insomnia [Recovering/Resolving]
